FAERS Safety Report 6527260-5 (Version None)
Quarter: 2010Q1

REPORT INFORMATION
  Report Type: 
  Country: None (occurrence: None)
  Receive Date: 20100105
  Receipt Date: 20091224
  Transmission Date: 20100710
  Serious: Yes (Hospitalization)
  Sender: FDA-Public Use
  Company Number: US-PFIZER INC-2009295868

PATIENT
  Sex: Male
  Weight: 93 kg

DRUGS (10)
  1. CELEBREX [Suspect]
     Indication: ARTHRITIS
     Dosage: 200 MG, 2X/DAY
     Route: 048
     Dates: start: 20010101
  2. LISINOPRIL [Suspect]
     Dosage: 5 MG, 1X/DAY
     Dates: end: 20060901
  3. NORVASC [Concomitant]
     Dosage: UNK
     Dates: start: 19980101
  4. NEURONTIN [Concomitant]
     Dosage: 600 MG, 3X/DAY
     Dates: start: 20010101
  5. BACTRIM DS [Concomitant]
     Dosage: UNK
  6. HYDROCHLOROTHIAZIDE [Concomitant]
     Dosage: 25 MG, 1X/DAY
  7. LABETALOL [Concomitant]
     Dosage: 300 MG, 2X/DAY
  8. PENTOXIFYLLINE [Concomitant]
     Dosage: 400 MG, 3X/DAY
  9. PLAVIX [Concomitant]
     Dosage: 75 MG, 1X/DAY
  10. ASPIRIN [Concomitant]
     Dosage: 325 MG, 1X/DAY

REACTIONS (3)
  - DEHYDRATION [None]
  - HYPERKALAEMIA [None]
  - RENAL FAILURE ACUTE [None]
